FAERS Safety Report 16895224 (Version 2)
Quarter: 2019Q4

REPORT INFORMATION
  Report Type: Report from Study
  Country: SE (occurrence: SE)
  Receive Date: 20191008
  Receipt Date: 20191010
  Transmission Date: 20200122
  Serious: Yes (Death, Hospitalization)
  Sender: FDA-Public Use
  Company Number: SE-EISAI MEDICAL RESEARCH-EC-2019-056798

PATIENT
  Age: 58 Year
  Sex: Male
  Weight: 95 kg

DRUGS (24)
  1. LENVATINIB [Suspect]
     Active Substance: LENVATINIB
     Indication: MALIGNANT MELANOMA STAGE III
     Route: 048
     Dates: start: 20190416, end: 20190515
  2. PEMBROLIZUMAB. [Suspect]
     Active Substance: PEMBROLIZUMAB
     Indication: MALIGNANT MELANOMA STAGE III
     Route: 041
     Dates: start: 20190416, end: 20190416
  3. GLYCOPYRROLATE. [Concomitant]
     Active Substance: GLYCOPYRROLATE
     Dates: start: 20180926
  4. SERTRALINE HYDROCHLORIDE. [Concomitant]
     Active Substance: SERTRALINE HYDROCHLORIDE
     Dates: start: 20180918
  5. NOVORAPID [Concomitant]
     Active Substance: INSULIN ASPART
     Dates: start: 20180530
  6. LIDOCAINE HYDROCHLORIDE. [Concomitant]
     Active Substance: LIDOCAINE HYDROCHLORIDE
     Dates: start: 20190429
  7. MIDAZOLAM [Concomitant]
     Active Substance: MIDAZOLAM HYDROCHLORIDE
     Dates: start: 20180926
  8. LENVATINIB [Suspect]
     Active Substance: LENVATINIB
     Indication: MALIGNANT MELANOMA STAGE IV
  9. ACETAMINOPHEN. [Concomitant]
     Active Substance: ACETAMINOPHEN
     Dates: start: 20180918
  10. PEMBROLIZUMAB. [Suspect]
     Active Substance: PEMBROLIZUMAB
     Indication: MALIGNANT MELANOMA STAGE IV
     Route: 041
     Dates: start: 20190507, end: 20190507
  11. OXYNORM [Concomitant]
     Active Substance: OXYCODONE HYDROCHLORIDE
     Dates: start: 20180607
  12. HALDOL [Concomitant]
     Active Substance: HALOPERIDOL
     Dates: start: 20180926
  13. PREGABALIN. [Concomitant]
     Active Substance: PREGABALIN
     Dates: start: 20180921
  14. ZOPICLONE [Concomitant]
     Active Substance: ZOPICLONE
     Dates: start: 20180613
  15. MORPHINE [Concomitant]
     Active Substance: MORPHINE
     Dates: start: 20180926
  16. EKLIRA GENUAIR [Concomitant]
     Active Substance: ACLIDINIUM BROMIDE
     Dates: start: 20180921
  17. METOPROLOL. [Concomitant]
     Active Substance: METOPROLOL
     Dates: start: 20190430
  18. BUVENTOL [Concomitant]
     Active Substance: ALBUTEROL SULFATE
     Dates: start: 20181005
  19. ONDANSETRON [Concomitant]
     Active Substance: ONDANSETRON
     Dates: start: 20180918
  20. OXYNORM [Concomitant]
     Active Substance: OXYCODONE HYDROCHLORIDE
     Dates: start: 20190429
  21. INNOHEP [Concomitant]
     Active Substance: TINZAPARIN SODIUM
     Dates: start: 20190417
  22. OXYCODONE [Concomitant]
     Active Substance: OXYCODONE
     Dates: start: 20181219
  23. OXASCAND [Concomitant]
     Active Substance: OXAZEPAM
     Dates: start: 20180926
  24. MATRIFEN [Concomitant]
     Active Substance: FENTANYL
     Dates: start: 20180918

REACTIONS (1)
  - Malignant neoplasm progression [Fatal]

NARRATIVE: CASE EVENT DATE: 20190517
